FAERS Safety Report 21002622 (Version 1)
Quarter: 2022Q2

REPORT INFORMATION
  Report Type: Spontaneous
  Country: US (occurrence: US)
  Receive Date: 20220624
  Receipt Date: 20220624
  Transmission Date: 20220721
  Serious: No
  Sender: FDA-Public Use
  Company Number: US-BioHaven Pharmaceuticals-2022BHV001339

PATIENT
  Age: 45 Year
  Sex: Female
  Weight: 54.026 kg

DRUGS (4)
  1. NURTEC ODT [Suspect]
     Active Substance: RIMEGEPANT SULFATE
     Indication: Migraine prophylaxis
     Dosage: 1 ODT, STARTED USING NURTEC ON AN AS-NEEDED BASIS, CURRENTLY TAKING 1 TABLET EVERY OTHER DAY?TAB/CAP
     Route: 048
     Dates: start: 202108
  2. VITAMINS [Concomitant]
     Active Substance: VITAMINS
     Indication: Product used for unknown indication
     Route: 065
  3. RIBOFLAVIN [Concomitant]
     Active Substance: RIBOFLAVIN
     Indication: Product used for unknown indication
     Route: 065
  4. PROBIOTICS NOS [Concomitant]
     Active Substance: PROBIOTICS NOS
     Indication: Product used for unknown indication
     Route: 065

REACTIONS (1)
  - Hair growth abnormal [Not Recovered/Not Resolved]
